FAERS Safety Report 15919861 (Version 1)
Quarter: 2019Q1

REPORT INFORMATION
  Report Type: Spontaneous
  Country: US (occurrence: US)
  Receive Date: 20190205
  Receipt Date: 20190205
  Transmission Date: 20190417
  Serious: No
  Sender: FDA-Public Use
  Company Number: US-ROCHE-2138520

PATIENT
  Sex: Female

DRUGS (16)
  1. XOLAIR [Suspect]
     Active Substance: OMALIZUMAB
     Indication: IDIOPATHIC URTICARIA
     Dosage: 150 MG VIAL
     Route: 058
     Dates: start: 201706
  2. BACLOFEN. [Concomitant]
     Active Substance: BACLOFEN
     Route: 065
  3. LISINOPRIL. [Concomitant]
     Active Substance: LISINOPRIL
     Route: 065
  4. MONTELUKAST [Concomitant]
     Active Substance: MONTELUKAST SODIUM
     Route: 065
  5. FLOVENT [Concomitant]
     Active Substance: FLUTICASONE PROPIONATE
     Dosage: 100 MCG/B
     Route: 065
  6. PROLIA [Concomitant]
     Active Substance: DENOSUMAB
     Dosage: 60 MG/ML
     Route: 065
  7. CLOPIDOGREL [Concomitant]
     Active Substance: CLOPIDOGREL BISULFATE
     Route: 065
  8. LEVOCETIRIZIN [Concomitant]
     Active Substance: LEVOCETIRIZINE DIHYDROCHLORIDE
     Route: 065
  9. METOPROLOL SUCCINATE. [Concomitant]
     Active Substance: METOPROLOL SUCCINATE
     Route: 065
  10. SERTRALINE HCL [Concomitant]
     Active Substance: SERTRALINE HYDROCHLORIDE
     Route: 065
  11. MONTELUKAST [Concomitant]
     Active Substance: MONTELUKAST SODIUM
     Route: 065
  12. METHYLPREDNISOLON [Concomitant]
     Active Substance: METHYLPREDNISOLONE
     Route: 065
  13. ATORVASTATIN [Concomitant]
     Active Substance: ATORVASTATIN
     Route: 065
  14. HYDROCORTISON [Concomitant]
     Active Substance: HYDROCORTISONE
     Route: 065
  15. FAMOTIDINE. [Concomitant]
     Active Substance: FAMOTIDINE
     Route: 065
  16. FLUTICASONE. [Concomitant]
     Active Substance: FLUTICASONE
     Dosage: 50 MCG/AC
     Route: 065

REACTIONS (3)
  - Rash [Not Recovered/Not Resolved]
  - Pruritus [Not Recovered/Not Resolved]
  - Rash erythematous [Not Recovered/Not Resolved]
